FAERS Safety Report 9225385 (Version 2)
Quarter: 2013Q2

REPORT INFORMATION
  Report Type: Report from Study
  Country: US (occurrence: US)
  Receive Date: 20130411
  Receipt Date: 20130418
  Transmission Date: 20140414
  Serious: Yes (Death, Hospitalization)
  Sender: FDA-Public Use
  Company Number: US-ROCHE-1210335

PATIENT
  Sex: 0

DRUGS (6)
  1. ALTEPLASE [Suspect]
     Indication: CORONARY ARTERY DISEASE
     Route: 013
  2. ASPIRIN [Concomitant]
  3. DIPYRIDAMOLE [Concomitant]
  4. HEPARIN [Concomitant]
  5. NITROGLYCERIN [Concomitant]
     Route: 042
  6. NITROGLYCERIN [Concomitant]
     Route: 022

REACTIONS (4)
  - Death [Fatal]
  - Myocardial infarction [Unknown]
  - Haemorrhage [Unknown]
  - Ventricular fibrillation [Unknown]
